FAERS Safety Report 21225657 (Version 1)
Quarter: 2022Q3

REPORT INFORMATION
  Report Type: Other
  Country: US (occurrence: None)
  Receive Date: 20220818
  Receipt Date: 20220818
  Transmission Date: 20221027
  Serious: Yes (Other)
  Sender: FDA-Public Use
  Company Number: US-ROCHE-3157588

PATIENT
  Sex: Female

DRUGS (4)
  1. PULMOZYME [Suspect]
     Active Substance: DORNASE ALFA
     Indication: Congenital anomaly
     Dosage: NEBULIZE THE CONTENTS OF 1 VIAL(S) TWICE A DAY
     Route: 055
  2. PULMOZYME [Suspect]
     Active Substance: DORNASE ALFA
     Indication: Respiration abnormal
  3. PULMOZYME [Suspect]
     Active Substance: DORNASE ALFA
     Indication: Blindness
  4. PULMOZYME [Suspect]
     Active Substance: DORNASE ALFA
     Indication: Congenital musculoskeletal disorder of limbs

REACTIONS (2)
  - Renal impairment [Unknown]
  - Off label use [Unknown]
